FAERS Safety Report 10366456 (Version 2)
Quarter: 2014Q3

REPORT INFORMATION
  Report Type: Spontaneous
  Country: NL (occurrence: None)
  Receive Date: 20140804
  Receipt Date: 20140811
  Transmission Date: 20150326
  Serious: Yes (Other)
  Sender: FDA-Public Use
  Company Number: 2014207528

PATIENT
  Age: 39 Year
  Sex: Female
  Weight: 89 kg

DRUGS (5)
  1. PARACETAMOL [Concomitant]
     Active Substance: ACETAMINOPHEN
  2. DALTEPARIN SODIUM [Suspect]
     Active Substance: DALTEPARIN SODIUM
     Indication: THROMBOPHLEBITIS
     Dates: start: 20140612, end: 20140626
  3. CLOBAZAM (CLOBAZAM) [Concomitant]
     Active Substance: CLOBAZAM
  4. ZONISAMIDE. [Concomitant]
     Active Substance: ZONISAMIDE
  5. DIPHANTOINE (PHENYTOIN SODIUM) [Concomitant]

REACTIONS (5)
  - Epilepsy [None]
  - Gamma-glutamyltransferase increased [None]
  - Blood alkaline phosphatase increased [None]
  - Blood lactate dehydrogenase increased [None]
  - Condition aggravated [None]

NARRATIVE: CASE EVENT DATE: 20140613
